FAERS Safety Report 8520192-2 (Version None)
Quarter: 2012Q3

REPORT INFORMATION
  Report Type: 
  Country: None (occurrence: None)
  Receive Date: 20120719
  Receipt Date: 20120710
  Transmission Date: 20120928
  Serious: Yes (Hospitalization)
  Sender: FDA-Public Use
  Company Number: US-JNJFOC-20120704634

PATIENT
  Sex: Male
  Weight: 130.64 kg

DRUGS (4)
  1. MERCAPTOPURINE [Concomitant]
     Route: 065
  2. REMICADE [Suspect]
     Indication: COLITIS ULCERATIVE
     Route: 042
  3. COUMADIN [Concomitant]
     Route: 065
  4. METFORMIN HYDROCHLORIDE [Concomitant]
     Route: 065

REACTIONS (1)
  - KNEE OPERATION [None]
